FAERS Safety Report 7375226-8 (Version None)
Quarter: 2011Q1

REPORT INFORMATION
  Report Type: 
  Country: None (occurrence: None)
  Receive Date: 20110325
  Receipt Date: 20110314
  Transmission Date: 20110831
  Serious: Yes (Life-Threatening, Hospitalization, Other)
  Sender: FDA-Public Use
  Company Number: US-ELI_LILLY_AND_COMPANY-US200909003705

PATIENT
  Sex: Female
  Weight: 57.143 kg

DRUGS (29)
  1. FISH OIL [Concomitant]
  2. XANAX [Concomitant]
  3. CORDARONE [Concomitant]
     Dosage: 200 MG, DAILY (1/D) FOR A WEEK
  4. DIGOXIN [Concomitant]
  5. TRAZODONE [Concomitant]
  6. DIOVAN [Concomitant]
  7. ALBUTEROL [Concomitant]
     Dosage: 90 UG, EVERY 4 HRS
  8. CARAFATE [Concomitant]
     Dosage: 100MG/ML
     Route: 048
  9. FLONASE [Concomitant]
     Dates: start: 20100312
  10. PLAVIX [Concomitant]
  11. ASPIRIN [Concomitant]
  12. PROZAC [Concomitant]
  13. AMIODARONE HCL [Concomitant]
  14. MAGNESIUM OXIDE [Concomitant]
  15. NEXIUM [Concomitant]
  16. SINGULAIR [Concomitant]
  17. METOPROLOL SUCCINATE [Concomitant]
     Dosage: 50 MG, DAILY (1/D)
     Dates: start: 20101210
  18. ADVAIR DISKUS 100/50 [Concomitant]
     Dosage: 50 UG, UNK
     Dates: start: 20110127
  19. IPRATROPIUM BROMIDE [Concomitant]
     Dosage: 500 UG, 3/D
     Dates: start: 20100910
  20. LORTAB [Concomitant]
     Dosage: 500 MG, AS NEEDED
     Dates: start: 20110218
  21. NEURONTIN [Concomitant]
     Dosage: 100 MG, UNK
     Route: 048
     Dates: start: 20101130
  22. SIMVASIN [Concomitant]
     Dosage: 40 MG, EACH EVENING
     Route: 048
  23. FORTEO [Suspect]
     Dosage: 20 UG, DAILY (1/D)
  24. FORTEO [Suspect]
     Indication: OSTEOPOROSIS
     Dosage: 20 UG, DAILY (1/D)
     Route: 058
     Dates: start: 20090301
  25. ZOCOR [Concomitant]
  26. TOPROL-XL [Concomitant]
  27. BIDIL [Concomitant]
     Indication: BLOOD PRESSURE
  28. LASIX [Concomitant]
  29. VITAMIN D [Concomitant]

REACTIONS (13)
  - STENT PLACEMENT [None]
  - VASCULAR OCCLUSION [None]
  - PATELLA FRACTURE [None]
  - ANAEMIA [None]
  - ASTHENIA [None]
  - PAIN [None]
  - FATIGUE [None]
  - INFLUENZA [None]
  - PAIN IN EXTREMITY [None]
  - GASTROINTESTINAL DISORDER [None]
  - CARDIAC DISORDER [None]
  - CARDIAC ARREST [None]
  - DYSPNOEA [None]
